FAERS Safety Report 18070177 (Version 1)
Quarter: 2020Q3

REPORT INFORMATION
  Report Type: Spontaneous
  Country: FR (occurrence: FR)
  Receive Date: 20200727
  Receipt Date: 20200727
  Transmission Date: 20201103
  Serious: Yes (Death, Other)
  Sender: FDA-Public Use
  Company Number: FR-SUN PHARMACEUTICAL INDUSTRIES LTD-2020RR-254943

PATIENT
  Age: 60 Year
  Sex: Male
  Weight: 47 kg

DRUGS (15)
  1. PHOCYTAN [Concomitant]
     Active Substance: .ALPHA.-GLUCOSE-1-PHOSPHATE
     Indication: ENTERAL NUTRITION
     Dosage: ()
     Route: 065
  2. METHYLPREDNISOLONE. [Suspect]
     Active Substance: METHYLPREDNISOLONE
     Indication: METASTATIC GASTRIC CANCER
     Route: 042
     Dates: start: 20200207, end: 20200512
  3. LEVOFOLINATE CALCIQUE [Suspect]
     Active Substance: LEVOLEUCOVORIN CALCIUM
     Indication: METASTATIC GASTRIC CANCER
     Dosage: 200 MILLIGRAM/SQ. METER
     Route: 042
     Dates: start: 20200207, end: 20200512
  4. LOVENOX [Concomitant]
     Active Substance: ENOXAPARIN SODIUM
     Indication: THROMBOSIS PROPHYLAXIS
     Dosage: UNK
     Route: 065
  5. FLUOROURACILE [Suspect]
     Active Substance: FLUOROURACIL
     Indication: METASTATIC GASTRIC CANCER
     Dosage: PUIS DIFFUSEUR 2400MG/M2
     Route: 042
     Dates: start: 20200207, end: 20200512
  6. ONDANSETRON [Suspect]
     Active Substance: ONDANSETRON
     Indication: CHEMOTHERAPY SIDE EFFECT PROPHYLAXIS
     Dosage: 8 MILLIGRAM
     Route: 048
     Dates: start: 20200207, end: 20200512
  7. RINGER LACTATE AGUETTANT [Concomitant]
     Indication: ENTERAL NUTRITION
     Dosage: UNK
     Route: 065
  8. METOCLOPRAMIDE. [Concomitant]
     Active Substance: METOCLOPRAMIDE
     Indication: NAUSEA
     Dosage: UNK
     Route: 065
  9. PARACETAMOL [Concomitant]
     Active Substance: ACETAMINOPHEN
     Indication: PAIN
     Dosage: UNK
     Route: 065
  10. OXALIPLATIN. [Suspect]
     Active Substance: OXALIPLATIN
     Indication: METASTATIC GASTRIC CANCER
     Dosage: 85 MILLIGRAM/SQ. METER
     Route: 042
     Dates: start: 20200207, end: 20200512
  11. APREPITANT. [Suspect]
     Active Substance: APREPITANT
     Indication: CHEMOTHERAPY SIDE EFFECT PROPHYLAXIS
     Dosage: 80 MILLIGRAM, DAILY
     Route: 048
     Dates: start: 20200207
  12. LARGACTIL 25 MG/5 ML, SOLUTION INJECTABLE EN AMPOULE [Concomitant]
     Active Substance: CHLORPROMAZINE HYDROCHLORIDE
     Indication: HICCUPS
     Dosage: UNK
     Route: 065
  13. PANTOPRAZOLE [Concomitant]
     Active Substance: PANTOPRAZOLE
     Indication: GASTROOESOPHAGEAL VARICEAL HAEMORRHAGE PROPHYLAXIS
     Dosage: UNK
     Route: 065
  14. ZOPHREN 8 MG, LYOPHILISAT ORAL [Concomitant]
     Active Substance: ONDANSETRON HYDROCHLORIDE
     Indication: NAUSEA
     Dosage: UNK
     Route: 065
  15. TRAMADOL (CHLORHYDRATE DE) [Concomitant]
     Active Substance: TRAMADOL HYDROCHLORIDE
     Indication: PAIN
     Dosage: UNK
     Route: 065

REACTIONS (1)
  - Intestinal ischaemia [Fatal]

NARRATIVE: CASE EVENT DATE: 20200514
